FAERS Safety Report 7676094-7 (Version None)
Quarter: 2011Q3

REPORT INFORMATION
  Report Type: 
  Country: None (occurrence: None)
  Receive Date: 20110811
  Receipt Date: 20110802
  Transmission Date: 20111222
  Serious: Yes (Other)
  Sender: FDA-Public Use
  Company Number: PHHY2011FR70723

PATIENT
  Age: 64 Year
  Sex: Male

DRUGS (2)
  1. METFORMIN HYDROCHLORIDE [Suspect]
     Dosage: 1000 MG METF AND 50 MG VILD
     Route: 048
     Dates: start: 20100601, end: 20100701
  2. AMLODIPINE [Suspect]
     Dosage: UNK UKN, UNK
     Dates: start: 20100601

REACTIONS (7)
  - JAUNDICE [None]
  - HEPATIC STEATOSIS [None]
  - ASTHENIA [None]
  - ALANINE AMINOTRANSFERASE ABNORMAL [None]
  - DECREASED APPETITE [None]
  - CYTOLYTIC HEPATITIS [None]
  - GAMMA-GLUTAMYLTRANSFERASE INCREASED [None]
